FAERS Safety Report 6581550-9 (Version None)
Quarter: 2010Q1

REPORT INFORMATION
  Report Type: 
  Country: None (occurrence: None)
  Receive Date: 20100215
  Receipt Date: 20100203
  Transmission Date: 20100710
  Serious: Yes (Other)
  Sender: FDA-Public Use
  Company Number: US-JNJFOC-20100107497

PATIENT
  Age: 72 Year
  Sex: Female
  Weight: 85.73 kg

DRUGS (8)
  1. ST. JOSEPH ENTERIC COATED [Suspect]
     Indication: CARDIAC DISORDER
     Route: 048
  2. BENICAR [Concomitant]
     Indication: HYPERTENSION
  3. COUMADIN [Concomitant]
     Indication: CARDIAC DISORDER
     Dosage: ALTERNATES 2.5 MG, 2 TIMES A WEEK WITH W 5 MG, 5 TIMES A WEEK FOR 8-9 YEARS
  4. METOPROLOL TARTRATE [Concomitant]
     Indication: HYPERTENSION
  5. ISOSORBIDE [Concomitant]
     Indication: HYPERTENSION
  6. LIPITOR [Concomitant]
     Indication: BLOOD CHOLESTEROL INCREASED
  7. ACTONEL [Concomitant]
     Indication: OSTEOPOROSIS
  8. POTASSIUM [Concomitant]
     Indication: MEDICAL DIET

REACTIONS (2)
  - DYSPNOEA [None]
  - PRODUCT QUALITY ISSUE [None]
